FAERS Safety Report 5759308-X (Version None)
Quarter: 2008Q2

REPORT INFORMATION
  Report Type: 
  Country: None (occurrence: None)
  Receive Date: 20080605
  Receipt Date: 20080529
  Transmission Date: 20081010
  Serious: Yes (Disabling)
  Sender: FDA-Public Use
  Company Number: GB-RANBAXY-2008RR-12966

PATIENT

DRUGS (6)
  1. SIMVASTATIN [Suspect]
     Indication: HYPERCHOLESTEROLAEMIA
     Dosage: 40 MG, UNK
     Route: 048
     Dates: start: 20060907, end: 20071205
  2. ASPIRIN [Concomitant]
     Dosage: 75 MG, UNK
     Route: 048
     Dates: start: 20021002
  3. KLIOFEM [Concomitant]
     Dosage: UNK
     Route: 048
     Dates: start: 20001221
  4. METFORMIN HCL [Concomitant]
     Dosage: 1 G, BID
     Route: 048
     Dates: start: 20020501
  5. FLUOXETINE HCL [Concomitant]
     Dosage: UNK
     Route: 048
     Dates: start: 20071102
  6. VENTOLIN [Concomitant]
     Dosage: UNK
     Route: 055
     Dates: start: 20020719

REACTIONS (6)
  - BREAST DISORDER FEMALE [None]
  - CONFUSIONAL STATE [None]
  - DEPRESSION [None]
  - DISTURBANCE IN ATTENTION [None]
  - MEMORY IMPAIRMENT [None]
  - POLYURIA [None]
